FAERS Safety Report 9843927 (Version 1)
Quarter: 2013Q4

REPORT INFORMATION
  Report Type: Spontaneous
  Country: US (occurrence: None)
  Receive Date: 20131223
  Receipt Date: 20131223
  Transmission Date: 20140711
  Serious: No
  Sender: FDA-Public Use
  Company Number: 1000049591

PATIENT
  Sex: Male

DRUGS (1)
  1. LINZESS (LINACLOTIDE) (CAPSULES) [Suspect]
     Dosage: 145 MCG (145 MCG, 1 IN 1 D), ORAL
     Route: 048

REACTIONS (1)
  - Diarrhoea [None]
